FAERS Safety Report 9656901 (Version 2)
Quarter: 2013Q4

REPORT INFORMATION
  Report Type: Spontaneous
  Country: CA (occurrence: CA)
  Receive Date: 20131030
  Receipt Date: 20131112
  Transmission Date: 20140711
  Serious: Yes (Other)
  Sender: FDA-Public Use
  Company Number: PHHY2013CA120035

PATIENT
  Age: 59 Year
  Sex: Male

DRUGS (2)
  1. METOPROLOL [Suspect]
     Indication: ATRIAL FIBRILLATION
     Route: 042
  2. WARFARIN [Suspect]
     Indication: ANTICOAGULANT THERAPY

REACTIONS (4)
  - Cerebrovascular accident [Recovered/Resolved]
  - Thalamus haemorrhage [Recovered/Resolved]
  - International normalised ratio increased [Unknown]
  - Gait disturbance [Recovered/Resolved]
